FAERS Safety Report 8954505 (Version 1)
Quarter: 2012Q4

REPORT INFORMATION
  Report Type: 
  Country: DE (occurrence: DE)
  Receive Date: 20121207
  Receipt Date: 20121207
  Transmission Date: 20130627
  Serious: Yes (Hospitalization)
  Sender: FDA-Public Use
  Company Number: DE-ELI_LILLY_AND_COMPANY-DE201211007979

PATIENT
  Age: 77 Year
  Sex: Female

DRUGS (5)
  1. FORSTEO [Suspect]
     Indication: OSTEOPOROSIS
     Dosage: UNK, qd
     Route: 058
     Dates: start: 20111108
  2. TRAMAL [Concomitant]
     Dosage: 150 DF, bid
     Route: 065
  3. PANTOPRAZOL [Concomitant]
     Dosage: UNK, unknown
     Route: 065
  4. CALCIUM [Concomitant]
     Dosage: UNK, unknown
     Route: 065
  5. VITAMIN D NOS [Concomitant]
     Dosage: UNK, unknown
     Route: 065

REACTIONS (1)
  - Aneurysm [Recovered/Resolved]
